FAERS Safety Report 9260455 (Version 2)
Quarter: 2013Q2

REPORT INFORMATION
  Report Type: Spontaneous
  Country: FR (occurrence: FR)
  Receive Date: 20130429
  Receipt Date: 20130524
  Transmission Date: 20140414
  Serious: Yes (Hospitalization)
  Sender: FDA-Public Use
  Company Number: FR-009507513-1304FRA013249

PATIENT
  Age: 57 Year
  Sex: Female

DRUGS (1)
  1. INTRONA [Suspect]
     Dosage: UNK UNK, QW
     Route: 041
     Dates: start: 20120924

REACTIONS (8)
  - Cutaneous vasculitis [Recovering/Resolving]
  - Injection site erythema [Recovering/Resolving]
  - Asthenia [Recovering/Resolving]
  - Pruritus [Recovering/Resolving]
  - Depression [Recovering/Resolving]
  - Weight decreased [Recovering/Resolving]
  - Decreased appetite [Recovering/Resolving]
  - Nausea [Recovered/Resolved]
